FAERS Safety Report 5655657-4 (Version None)
Quarter: 2008Q1

REPORT INFORMATION
  Report Type: 
  Country: None (occurrence: None)
  Receive Date: 20080307
  Receipt Date: 20080225
  Transmission Date: 20080703
  Serious: No
  Sender: FDA-Public Use
  Company Number: JP-ASTRAZENECA-2008AP01132

PATIENT
  Age: 14282 Day
  Sex: Male

DRUGS (2)
  1. SEROQUEL [Suspect]
     Indication: SCHIZOPHRENIA
     Route: 048
     Dates: start: 20070501, end: 20070502
  2. SEROQUEL [Suspect]
     Route: 048
     Dates: start: 20070502

REACTIONS (1)
  - ANAEMIA [None]
